FAERS Safety Report 5092852-X (Version None)
Quarter: 2006Q3

REPORT INFORMATION
  Report Type: 
  Country: None (occurrence: None)
  Receive Date: 20060823
  Receipt Date: 20060809
  Transmission Date: 20061208
  Serious: Yes (Hospitalization, Other)
  Sender: FDA-Public Use
  Company Number: 2006BH000175

PATIENT
  Age: 16 Month
  Sex: Male
  Weight: 13.5 kg

DRUGS (11)
  1. ADVATE (OCTOCOG ALFA) [Suspect]
     Indication: FACTOR VIII DEFICIENCY
     Dosage: SEE IMAGE
     Dates: start: 20051029, end: 20051130
  2. ADVATE (OCTOCOG ALFA) [Suspect]
     Indication: HAEMORRHAGE
     Dosage: SEE IMAGE
     Dates: start: 20051029, end: 20051130
  3. ADVATE (OCTOCOG ALFA) [Suspect]
     Indication: FACTOR VIII DEFICIENCY
     Dosage: SEE IMAGE
     Dates: start: 20051209, end: 20051211
  4. ADVATE (OCTOCOG ALFA) [Suspect]
     Indication: HAEMORRHAGE
     Dosage: SEE IMAGE
     Dates: start: 20051209, end: 20051211
  5. ADVATE (OCTOCOG ALFA) [Suspect]
     Indication: FACTOR VIII DEFICIENCY
     Dosage: SEE IMAGE
     Dates: start: 20051219, end: 20051226
  6. ADVATE (OCTOCOG ALFA) [Suspect]
     Indication: HAEMORRHAGE
     Dosage: SEE IMAGE
     Dates: start: 20051219, end: 20051226
  7. ADVATE (OCTOCOG ALFA) [Suspect]
  8. ADVATE (OCTOCOG ALFA) [Suspect]
  9. . [Concomitant]
  10. XYLOMETAZOLINE HYDROCHLORIDE [Concomitant]
  11. SILOMAT [Concomitant]

REACTIONS (6)
  - DRUG INEFFECTIVE [None]
  - FACTOR VIII INHIBITION [None]
  - HAEMATOMA [None]
  - INHIBITING ANTIBODIES [None]
  - LIP HAEMORRHAGE [None]
  - MUSCLE HAEMORRHAGE [None]
